FAERS Safety Report 8455619-8 (Version None)
Quarter: 2012Q2

REPORT INFORMATION
  Report Type: 
  Country: None (occurrence: None)
  Receive Date: 20120614
  Receipt Date: 20120104
  Transmission Date: 20120825
  Serious: No
  Sender: FDA-Public Use
  Company Number: FDB-2012-001

PATIENT
  Age: 4 Year
  Sex: Female

DRUGS (1)
  1. TECHNETIUM 99M SULFUR COLLOID SOLUTION/INJ [Suspect]
     Indication: SCAN LYMPH NODES
     Dosage: SUBCUTANEOUS-250UCI 4X
     Route: 058
     Dates: start: 20120104

REACTIONS (1)
  - PRURITUS [None]
